FAERS Safety Report 6400450-8 (Version None)
Quarter: 2009Q4

REPORT INFORMATION
  Report Type: 
  Country: None (occurrence: None)
  Receive Date: 20091014
  Receipt Date: 20091001
  Transmission Date: 20100525
  Serious: Yes (Hospitalization, Other)
  Sender: FDA-Public Use
  Company Number: FR-ELI_LILLY_AND_COMPANY-FR200908003485

PATIENT
  Age: 79 Year
  Sex: Female

DRUGS (3)
  1. FORTEO [Suspect]
     Indication: OSTEOPOROSIS
     Dosage: 20 UG, UNKNOWN
     Route: 058
     Dates: start: 20090501
  2. LYRICA [Concomitant]
     Dosage: 50 MG, UNKNOWN
     Route: 065
     Dates: end: 20090813
  3. LYRICA [Concomitant]
     Dosage: 25 MG, UNKNOWN
     Route: 065
     Dates: start: 20090813

REACTIONS (5)
  - CONVULSION [None]
  - FATIGUE [None]
  - GRAND MAL CONVULSION [None]
  - HYPONATRAEMIA [None]
  - ISCHAEMIC STROKE [None]
